FAERS Safety Report 4743460-9 (Version None)
Quarter: 2005Q3

REPORT INFORMATION
  Report Type: 
  Country: None (occurrence: None)
  Receive Date: 20050810
  Receipt Date: 20050810
  Transmission Date: 20060218
  Serious: Yes (Hospitalization)
  Sender: FDA-Public Use
  Company Number: None

PATIENT
  Age: 69 Year
  Sex: Male
  Weight: 73.1 kg

DRUGS (14)
  1. WARFARIN [Suspect]
     Indication: DEEP VEIN THROMBOSIS
     Dosage: SEE IMAGE
  2. WARFARIN [Suspect]
     Indication: PULMONARY EMBOLISM
     Dosage: SEE IMAGE
  3. FOSINOPRIL NA [Concomitant]
  4. NAPROXEN [Concomitant]
  5. PSYLLIUM [Concomitant]
  6. FLUTAMIDE [Concomitant]
  7. HYDROCORTISONE ACETATE [Concomitant]
  8. FERROUS SULFATE TAB [Concomitant]
  9. ENOXAPARIN SODIUM [Concomitant]
  10. GATIFLOXACIN [Concomitant]
  11. LACTULOSE [Concomitant]
  12. MORPHINE [Concomitant]
  13. OMEPRAZOLE [Concomitant]
  14. GOSERELIN [Concomitant]

REACTIONS (4)
  - BARRETT'S OESOPHAGUS [None]
  - GASTROINTESTINAL HAEMORRHAGE [None]
  - INTERNATIONAL NORMALISED RATIO INCREASED [None]
  - OESOPHAGEAL ULCER [None]
